FAERS Safety Report 8167719-0 (Version None)
Quarter: 2012Q1

REPORT INFORMATION
  Report Type: 
  Country: None (occurrence: None)
  Receive Date: 20120227
  Receipt Date: 20120217
  Transmission Date: 20120608
  Serious: Yes (Hospitalization)
  Sender: FDA-Public Use
  Company Number: US-BAYER-2012-017039

PATIENT
  Age: 38 Year
  Sex: Female

DRUGS (5)
  1. CELEXA [Concomitant]
     Dosage: 10 MG, QD
  2. ACETAMINOPHEN AND HYDROCODONE BITARTRATE [Concomitant]
  3. VITAMIN D [Concomitant]
     Dosage: 50000 U, BID
     Route: 048
  4. DROSPIRENONE AND ETHINYL ESTRADIOL [Suspect]
     Dosage: UNK
     Route: 048
     Dates: start: 20080701, end: 20100701
  5. SYNTHROID [Concomitant]
     Dosage: UNK UNK, QD
     Route: 048

REACTIONS (2)
  - DEEP VEIN THROMBOSIS [None]
  - PULMONARY EMBOLISM [None]
